FAERS Safety Report 22350792 (Version 1)
Quarter: 2023Q2

REPORT INFORMATION
  Report Type: Spontaneous
  Country: US (occurrence: US)
  Receive Date: 20230522
  Receipt Date: 20230522
  Transmission Date: 20230722
  Serious: Yes (Other)
  Sender: FDA-Public Use
  Company Number: US-BRISTOL-MYERS SQUIBB COMPANY-2023-071757

PATIENT
  Age: 59 Year
  Sex: Female

DRUGS (10)
  1. BELATACEPT [Suspect]
     Active Substance: BELATACEPT
     Indication: Renal transplant
     Dosage: INTRAOPERATIVE DOSE
  2. BELATACEPT [Suspect]
     Active Substance: BELATACEPT
     Indication: Liver transplant
     Dosage: INTRAOPERATIVE DOSE
  3. MYCOPHENOLATE MOFETIL [Suspect]
     Active Substance: MYCOPHENOLATE MOFETIL
     Indication: Renal transplant
  4. MYCOPHENOLATE MOFETIL [Suspect]
     Active Substance: MYCOPHENOLATE MOFETIL
     Indication: Liver transplant
  5. TACROLIMUS [Suspect]
     Active Substance: TACROLIMUS
     Indication: Liver transplant
     Dosage: 3-8 NG/ML
  6. TACROLIMUS [Suspect]
     Active Substance: TACROLIMUS
     Indication: Renal transplant
  7. PREDNISOLONE [Suspect]
     Active Substance: PREDNISOLONE
     Indication: Renal transplant
     Dosage: INTRAOPERATIVELY
     Route: 042
  8. PREDNISOLONE [Suspect]
     Active Substance: PREDNISOLONE
     Indication: Liver transplant
     Dosage: POSTOPERATIVE DAYS 1
     Route: 042
  9. PREDNISOLONE [Suspect]
     Active Substance: PREDNISOLONE
     Dosage: POSTOPERATIVE DAYS 2
     Route: 042
  10. PREDNISOLONE [Suspect]
     Active Substance: PREDNISOLONE
     Dosage: MG POSTOPERATIVELY DAILY THEREAFTER

REACTIONS (4)
  - Polyomavirus viraemia [Unknown]
  - Off label use [Unknown]
  - Polyomavirus-associated nephropathy [Recovered/Resolved]
  - Infected seroma [Unknown]
